FAERS Safety Report 6491860-1 (Version None)
Quarter: 2009Q4

REPORT INFORMATION
  Report Type: 
  Country: None (occurrence: None)
  Receive Date: 20091210
  Receipt Date: 20091201
  Transmission Date: 20100525
  Serious: Yes (Death, Hospitalization)
  Sender: FDA-Public Use
  Company Number: 080

PATIENT
  Age: 73 Year
  Sex: Male

DRUGS (7)
  1. FAZACLO ODT [Suspect]
     Indication: SCHIZOPHRENIA
     Dosage: 300 MG PO DAILY
     Route: 048
     Dates: start: 20060516, end: 20061121
  2. COUMADIN [Concomitant]
  3. LISINOPRIL [Concomitant]
  4. TOPROL-XL [Concomitant]
  5. ATORVASTATIN CALCIUM [Concomitant]
  6. GEMFIBROZIL [Concomitant]
  7. FIBERCON [Concomitant]

REACTIONS (3)
  - CARDIAC ARREST [None]
  - CEREBROVASCULAR DISORDER [None]
  - CHOKING [None]
